FAERS Safety Report 10268698 (Version 1)
Quarter: 2014Q2

REPORT INFORMATION
  Report Type: Spontaneous
  Country: IN (occurrence: IN)
  Receive Date: 20140630
  Receipt Date: 20140630
  Transmission Date: 20141212
  Serious: Yes (Other)
  Sender: FDA-Public Use
  Company Number: IN-B.I. PHARMACEUTICALS,INC./RIDGEFIELD-2014-BI-29309IG

PATIENT
  Age: 30 Year
  Sex: 0

DRUGS (3)
  1. PRADAXA [Suspect]
     Indication: DEEP VEIN THROMBOSIS
     Dosage: 300 MG
     Route: 065
  2. PRADAXA [Suspect]
     Indication: PULMONARY EMBOLISM
  3. LOW MOLECULAR WEIGHT HEPARIN [Concomitant]
     Route: 065

REACTIONS (1)
  - Peripheral embolism [Unknown]
